FAERS Safety Report 21432848 (Version 3)
Quarter: 2023Q1

REPORT INFORMATION
  Report Type: Report from Study
  Country: US (occurrence: US)
  Receive Date: 20221010
  Receipt Date: 20230108
  Transmission Date: 20230417
  Serious: Yes (Other)
  Sender: FDA-Public Use
  Company Number: US-ABBVIE-4143783

PATIENT
  Age: 72 Year
  Sex: Male
  Weight: 83 kg

DRUGS (6)
  1. HUMIRA [Suspect]
     Active Substance: ADALIMUMAB
     Indication: Rheumatoid arthritis
     Route: 058
     Dates: start: 2019
  2. HUMIRA [Suspect]
     Active Substance: ADALIMUMAB
     Route: 058
     Dates: start: 20181127
  3. MODERNA COVID-19 VACCINE [Concomitant]
     Active Substance: ELASOMERAN
     Indication: COVID-19 immunisation
     Dosage: TIME INTERVAL: TOTAL: SECOND DOSE, ONE IN ONCE
     Route: 030
     Dates: start: 20210327, end: 20210327
  4. MODERNA COVID-19 VACCINE [Concomitant]
     Active Substance: ELASOMERAN
     Indication: COVID-19 immunisation
     Dosage: TIME INTERVAL: TOTAL: FIRST DOSE, ONE IN ONCE
     Route: 030
     Dates: start: 20210227, end: 20210227
  5. MODERNA COVID-19 VACCINE [Concomitant]
     Active Substance: ELASOMERAN
     Indication: COVID-19 immunisation
     Dosage: TIME INTERVAL: TOTAL: THIRD DOSE, ONE IN ONCE
     Route: 030
     Dates: start: 20220104, end: 20220104
  6. TRAMADOL [Concomitant]
     Active Substance: TRAMADOL
     Indication: Pain

REACTIONS (4)
  - Gait disturbance [Recovered/Resolved]
  - Knee arthroplasty [Recovered/Resolved]
  - Hepatic enzyme increased [Not Recovered/Not Resolved]
  - Throat lesion [Recovered/Resolved]

NARRATIVE: CASE EVENT DATE: 20201001
